FAERS Safety Report 25512573 (Version 1)
Quarter: 2025Q3

REPORT INFORMATION
  Report Type: Spontaneous
  Country: US (occurrence: US)
  Receive Date: 20250703
  Receipt Date: 20250703
  Transmission Date: 20251021
  Serious: No
  Sender: RADIUS PHARM
  Company Number: US-RADIUS HEALTH INC.-2024US005271

PATIENT
  Sex: Female

DRUGS (1)
  1. TYMLOS [Suspect]
     Active Substance: ABALOPARATIDE
     Indication: Product used for unknown indication

REACTIONS (7)
  - Weight increased [Unknown]
  - Bone pain [Unknown]
  - Arthralgia [Unknown]
  - C-reactive protein increased [Unknown]
  - Inflammation [Unknown]
  - Pain [Unknown]
  - Red blood cell sedimentation rate increased [Unknown]
